FAERS Safety Report 12931392 (Version 2)
Quarter: 2016Q4

REPORT INFORMATION
  Report Type: Spontaneous
  Country: US (occurrence: US)
  Receive Date: 20161110
  Receipt Date: 20161222
  Transmission Date: 20170207
  Serious: Yes (Death)
  Sender: FDA-Public Use
  Company Number: US-RELYPSA-RLY2016003597

PATIENT
  Age: 61 Year
  Sex: Female

DRUGS (16)
  1. VELTASSA [Suspect]
     Active Substance: PATIROMER
     Indication: HYPERKALAEMIA
     Dosage: 8.4 G, QD
     Route: 048
     Dates: start: 20160909
  2. SENSIPAR [Concomitant]
     Active Substance: CINACALCET HYDROCHLORIDE
  3. STOOL SOFTENER (DOCUSATE CALCIUM) [Concomitant]
     Active Substance: DOCUSATE CALCIUM
  4. ADVAIR HFA [Concomitant]
     Active Substance: FLUTICASONE PROPIONATE\SALMETEROL XINAFOATE
  5. EPOGEN [Concomitant]
     Active Substance: ERYTHROPOIETIN
  6. CARNITINE [Concomitant]
     Active Substance: CARNITINE
  7. TEMAZEPAM. [Concomitant]
     Active Substance: TEMAZEPAM
  8. ATROVENT HFA [Concomitant]
     Active Substance: IPRATROPIUM BROMIDE
  9. WARFARIN SODIUM. [Concomitant]
     Active Substance: WARFARIN SODIUM
  10. MIRAPEX [Concomitant]
     Active Substance: PRAMIPEXOLE DIHYDROCHLORIDE
  11. LEVOTHYROXINE SODIUM. [Concomitant]
     Active Substance: LEVOTHYROXINE SODIUM
  12. KEPPRA [Concomitant]
     Active Substance: LEVETIRACETAM
  13. ALBUTEROL SULFATE. [Concomitant]
     Active Substance: ALBUTEROL SULFATE
  14. VITAMIN B C COMPLEX [Concomitant]
  15. RENAGEL [Concomitant]
     Active Substance: SEVELAMER HYDROCHLORIDE
  16. NORCO [Concomitant]
     Active Substance: ACETAMINOPHEN\HYDROCODONE BITARTRATE

REACTIONS (1)
  - Death [Fatal]

NARRATIVE: CASE EVENT DATE: 20161025
